FAERS Safety Report 21859318 (Version 1)
Quarter: 2023Q1

REPORT INFORMATION
  Report Type: Spontaneous
  Country: US (occurrence: US)
  Receive Date: 20230113
  Receipt Date: 20230113
  Transmission Date: 20230417
  Serious: Yes (Death, Hospitalization)
  Sender: FDA-Public Use
  Company Number: US-BAYER-2023A003629

PATIENT
  Age: 49 Year
  Sex: Male

DRUGS (6)
  1. NAPROXEN SODIUM [Suspect]
     Active Substance: NAPROXEN SODIUM
     Route: 048
  2. AMLODIPINE [Suspect]
     Active Substance: AMLODIPINE BESYLATE
  3. GUANFACINE [Suspect]
     Active Substance: GUANFACINE
  4. ALCOHOL [Suspect]
     Active Substance: ALCOHOL
  5. LISINOPRIL [Suspect]
     Active Substance: LISINOPRIL
  6. CITALOPRAM [Suspect]
     Active Substance: CITALOPRAM HYDROBROMIDE

REACTIONS (2)
  - Completed suicide [Fatal]
  - Toxicity to various agents [Fatal]
